FAERS Safety Report 8609979-5 (Version None)
Quarter: 2012Q3

REPORT INFORMATION
  Report Type: 
  Country: None (occurrence: None)
  Receive Date: 20120822
  Receipt Date: 20120808
  Transmission Date: 20120928
  Serious: Yes (Hospitalization)
  Sender: FDA-Public Use
  Company Number: JP-MYLANLABS-2012S1014454

PATIENT
  Age: 65 Year
  Sex: Male

DRUGS (2)
  1. IRINOTECAN HYDROCHLORIDE [Suspect]
     Indication: LARGE INTESTINE CARCINOMA
     Route: 041
  2. TS-1 [Concomitant]
     Indication: LARGE INTESTINE CARCINOMA
     Route: 048

REACTIONS (2)
  - ANASTOMOTIC STENOSIS [None]
  - ENTERITIS [None]
